FAERS Safety Report 24867504 (Version 1)
Quarter: 2025Q1

REPORT INFORMATION
  Report Type: Spontaneous
  Country: US (occurrence: None)
  Receive Date: 20250118
  Receipt Date: 20250118
  Transmission Date: 20250409
  Serious: Yes (Hospitalization)
  Sender: FDA-CTU
  Company Number: None

PATIENT
  Sex: Male

DRUGS (6)
  1. NOVOSEVEN RT [Suspect]
     Active Substance: COAGULATION FACTOR VIIA RECOMBINANT HUMAN
     Indication: Factor VIII deficiency
     Route: 042
     Dates: start: 202501
  2. HEPARIN L/L FLUSH-SYR [Concomitant]
  3. LIDOCAINE/PRILOCAINE CRM [Concomitant]
  4. SODIUM CHLORIDE [Concomitant]
     Active Substance: SODIUM CHLORIDE
  5. ALPHANATE INJ [Concomitant]
  6. FEIBA INJ [Concomitant]

REACTIONS (2)
  - Mouth haemorrhage [None]
  - Haematuria [None]
